FAERS Safety Report 5911927-3 (Version None)
Quarter: 2008Q4

REPORT INFORMATION
  Report Type: 
  Country: None (occurrence: None)
  Receive Date: 20081003
  Receipt Date: 20080929
  Transmission Date: 20090506
  Serious: Yes (Hospitalization)
  Sender: FDA-Public Use
  Company Number: GXKR2008DE09375

PATIENT
  Sex: Male
  Weight: 100 kg

DRUGS (3)
  1. ACETYLSALICYLIC ACID SRT [Suspect]
     Dosage: 100 MG, QD, ORAL
     Route: 048
     Dates: start: 20080103, end: 20080104
  2. ACYCLOVIR [Concomitant]
  3. DUOTRAV (TIMOLOL MALEATE, TRAVOPROST) EYE DROPS [Concomitant]

REACTIONS (1)
  - AUTOIMMUNE THROMBOCYTOPENIA [None]
